FAERS Safety Report 6160631-8 (Version None)
Quarter: 2009Q2

REPORT INFORMATION
  Report Type: 
  Country: None (occurrence: None)
  Receive Date: 20090420
  Receipt Date: 20090406
  Transmission Date: 20091009
  Serious: Yes (Death, Hospitalization)
  Sender: FDA-Public Use
  Company Number: US-GENENTECH-280542

PATIENT
  Sex: Female

DRUGS (4)
  1. BEVACIZUMAB [Suspect]
     Indication: COLORECTAL CANCER
     Dosage: 10 MG/KG, Q2W
     Route: 042
     Dates: start: 20030310
  2. OXALIPLATIN [Suspect]
     Indication: COLORECTAL CANCER
     Dosage: 85 MG/M2, Q2W
     Route: 042
     Dates: start: 20030310
  3. LEUCOVORIN CALCIUM [Suspect]
     Indication: COLORECTAL CANCER
     Dosage: 200 MG/M2, Q2W
     Dates: start: 20030310
  4. FLUOROURACIL [Suspect]
     Indication: COLORECTAL CANCER
     Dosage: 400 MG/M2, Q2W
     Route: 042
     Dates: start: 20030310

REACTIONS (2)
  - PULMONARY EMBOLISM [None]
  - SUDDEN DEATH [None]
